FAERS Safety Report 16754063 (Version 1)
Quarter: 2019Q3

REPORT INFORMATION
  Report Type: Spontaneous
  Country: US (occurrence: US)
  Receive Date: 20190829
  Receipt Date: 20190829
  Transmission Date: 20191005
  Serious: No
  Sender: FDA-Public Use
  Company Number: US-ASTRAZENECA-2019SF08289

PATIENT
  Age: 20313 Day
  Sex: Female

DRUGS (1)
  1. ZOMIG [Suspect]
     Active Substance: ZOLMITRIPTAN
     Dosage: INHALE 1 SPRAY INTO NOSTRIL AS DIRECTED EVERY DAY AS NEEDED
     Route: 045
     Dates: start: 20190426

REACTIONS (4)
  - Product dose omission [Unknown]
  - Sinusitis [Unknown]
  - Malaise [Unknown]
  - Somnolence [Unknown]

NARRATIVE: CASE EVENT DATE: 20190725
